FAERS Safety Report 10252950 (Version 1)
Quarter: 2014Q2

REPORT INFORMATION
  Report Type: Spontaneous
  Country: US (occurrence: US)
  Receive Date: 20140623
  Receipt Date: 20140623
  Transmission Date: 20141212
  Serious: No
  Sender: FDA-Public Use
  Company Number: US-PFIZER INC-2014171085

PATIENT
  Age: 61 Year
  Sex: Female
  Weight: 70.3 kg

DRUGS (3)
  1. ESTRING [Suspect]
     Indication: VULVOVAGINAL DRYNESS
     Dosage: UNK
     Route: 067
     Dates: start: 20140509, end: 20140606
  2. ESTRING [Suspect]
     Indication: MICTURITION DISORDER
  3. CLARITIN [Concomitant]
     Indication: HYPERSENSITIVITY
     Dosage: UNK

REACTIONS (1)
  - Back pain [Unknown]
